FAERS Safety Report 7215825-7 (Version None)
Quarter: 2011Q1

REPORT INFORMATION
  Report Type: 
  Country: None (occurrence: None)
  Receive Date: 20110107
  Receipt Date: 20101228
  Transmission Date: 20110831
  Serious: Yes (Hospitalization)
  Sender: FDA-Public Use
  Company Number: JP-GENENTECH-308518

PATIENT
  Sex: Male

DRUGS (5)
  1. RITUXAN [Suspect]
     Indication: B-CELL LYMPHOMA
  2. PREDNISOLONE [Concomitant]
     Indication: B-CELL LYMPHOMA
  3. DOXORUBICIN HCL [Concomitant]
     Indication: B-CELL LYMPHOMA
  4. VINCRISTINE SULFATE [Concomitant]
     Indication: B-CELL LYMPHOMA
  5. CYCLOPHOSPHAMIDE [Concomitant]
     Indication: B-CELL LYMPHOMA

REACTIONS (1)
  - ILEAL STENOSIS [None]
